FAERS Safety Report 14367529 (Version 1)
Quarter: 2018Q1

REPORT INFORMATION
  Report Type: Spontaneous
  Country: US (occurrence: US)
  Receive Date: 20180108
  Receipt Date: 20180108
  Transmission Date: 20180509
  Serious: Yes (Other)
  Sender: FDA-Public Use
  Company Number: None

PATIENT
  Age: 64 Year
  Sex: Male
  Weight: 60.75 kg

DRUGS (3)
  1. MULTIVITAMIN [Concomitant]
     Active Substance: VITAMINS
  2. TAMIFLU [Suspect]
     Active Substance: OSELTAMIVIR PHOSPHATE
     Dosage: ?          QUANTITY:10 CAPSULE(S);?
     Route: 048
     Dates: start: 20180106, end: 20180108
  3. FISH OIL [Concomitant]
     Active Substance: FISH OIL

REACTIONS (4)
  - Therapy cessation [None]
  - Urticaria [None]
  - Skin disorder [None]
  - Rash pruritic [None]

NARRATIVE: CASE EVENT DATE: 20180107
